FAERS Safety Report 5447983-9 (Version None)
Quarter: 2007Q3

REPORT INFORMATION
  Report Type: 
  Country: None (occurrence: None)
  Receive Date: 20070910
  Receipt Date: 20070830
  Transmission Date: 20080115
  Serious: Yes (Hospitalization)
  Sender: FDA-Public Use
  Company Number: IT-BOEHRINGER INGELHEIM PHARMACEUTICALS, INC.-2007-IT-00302IT

PATIENT
  Sex: Male
  Weight: 72 kg

DRUGS (3)
  1. TIPRANAVIR+RITONAVIR CO-ADMIN [Suspect]
     Indication: HIV INFECTION
     Dosage: 1000MG TIPRANAVIR + 400MG RITONAVIR
     Route: 048
     Dates: start: 20030925, end: 20070825
  2. DIDANOSINE [Concomitant]
     Indication: HIV INFECTION
     Route: 048
     Dates: start: 20030925, end: 20070825
  3. TENOFOVIR DISOPROXIL FUMARATE [Concomitant]
     Indication: HIV INFECTION
     Route: 048
     Dates: start: 20030925, end: 20070825

REACTIONS (1)
  - HEMIPARESIS [None]
